FAERS Safety Report 5874531-1 (Version None)
Quarter: 2008Q3

REPORT INFORMATION
  Report Type: 
  Country: None (occurrence: None)
  Receive Date: 20080909
  Receipt Date: 20080901
  Transmission Date: 20090109
  Serious: Yes (Disabling, Other)
  Sender: FDA-Public Use
  Company Number: PHEH2008US07830

PATIENT
  Sex: Female

DRUGS (1)
  1. RECLAST [Suspect]
     Dosage: UNK
     Dates: start: 20080813

REACTIONS (5)
  - ARTHRALGIA [None]
  - ASPIRATION JOINT [None]
  - BONE PAIN [None]
  - MYALGIA [None]
  - PYREXIA [None]
